FAERS Safety Report 8333637-8 (Version None)
Quarter: 2012Q2

REPORT INFORMATION
  Report Type: 
  Country: None (occurrence: None)
  Receive Date: 20120503
  Receipt Date: 20120424
  Transmission Date: 20120825
  Serious: Yes (Other)
  Sender: FDA-Public Use
  Company Number: US-BAYER-2012-040933

PATIENT

DRUGS (3)
  1. ASPIRIN [Concomitant]
     Indication: ARTHRITIS
  2. IBUPROFEN (ADVIL) [Concomitant]
     Indication: ARTHRITIS
  3. NAPROXEN SODIUM [Suspect]
     Indication: ARTHRITIS
     Route: 048

REACTIONS (3)
  - MALAISE [None]
  - DRUG HYPERSENSITIVITY [None]
  - HYPERSENSITIVITY [None]
